FAERS Safety Report 10831768 (Version 5)
Quarter: 2015Q2

REPORT INFORMATION
  Report Type: Spontaneous
  Country: US (occurrence: US)
  Receive Date: 20150219
  Receipt Date: 20150501
  Transmission Date: 20150821
  Serious: No
  Sender: FDA-Public Use
  Company Number: US-BAXTER-2015BAX006784

PATIENT
  Age: 16 Year
  Sex: Female
  Weight: 63.6 kg

DRUGS (8)
  1. HYQVIA [Suspect]
     Active Substance: HUMAN IMMUNOGLOBULIN G\HYALURONIDASE RECOMBINANT HUMAN
     Dosage: 32.5G/325 ML INTO 2 INFUSION SITES
     Route: 058
     Dates: start: 20150320, end: 20150320
  2. HYQVIA [Suspect]
     Active Substance: HUMAN IMMUNOGLOBULIN G\HYALURONIDASE RECOMBINANT HUMAN
     Dosage: 32.5G/325 ML INTO 2 INFUSION SITES
     Route: 058
     Dates: start: 20150413, end: 20150413
  3. HYQVIA [Suspect]
     Active Substance: HUMAN IMMUNOGLOBULIN G\HYALURONIDASE RECOMBINANT HUMAN
     Dosage: 15G/150 ML INTO 2 INFUSION SITES
     Route: 058
     Dates: start: 20150208, end: 20150208
  4. HYQVIA [Suspect]
     Active Substance: HUMAN IMMUNOGLOBULIN G\HYALURONIDASE RECOMBINANT HUMAN
     Dosage: 7.5G/75 ML INTO 1 INFUSION SITE
     Route: 058
     Dates: start: 20150131, end: 20150131
  5. HYQVIA [Suspect]
     Active Substance: HUMAN IMMUNOGLOBULIN G\HYALURONIDASE RECOMBINANT HUMAN
     Dosage: 32.5G/325 ML INTO 2 INFUSION SITES
     Route: 058
     Dates: start: 20150413, end: 20150413
  6. HYQVIA [Suspect]
     Active Substance: HUMAN IMMUNOGLOBULIN G\HYALURONIDASE RECOMBINANT HUMAN
     Indication: SELECTIVE POLYSACCHARIDE ANTIBODY DEFICIENCY
     Dosage: 32.5G/325 ML INTO 2 INFUSION SITES
     Route: 058
     Dates: start: 20150131, end: 20150131
  7. HYQVIA [Suspect]
     Active Substance: HUMAN IMMUNOGLOBULIN G\HYALURONIDASE RECOMBINANT HUMAN
     Dosage: 15G/150 ML INTO 2 INFUSION SITES
     Route: 058
     Dates: start: 20150208, end: 20150208
  8. HYQVIA [Suspect]
     Active Substance: HUMAN IMMUNOGLOBULIN G\HYALURONIDASE RECOMBINANT HUMAN
     Dosage: 32.5G/325 ML INTO 2 INFUSION SITES
     Route: 058
     Dates: start: 20150320, end: 20150320

REACTIONS (9)
  - Infusion site swelling [Recovered/Resolved]
  - Infusion site discolouration [Recovered/Resolved]
  - Nausea [Unknown]
  - Infusion site erythema [Recovering/Resolving]
  - Pain [Unknown]
  - Infusion site pain [Recovered/Resolved]
  - Infusion site discomfort [Recovered/Resolved]
  - Infusion site discomfort [Recovered/Resolved]
  - Pruritus [Recovered/Resolved]

NARRATIVE: CASE EVENT DATE: 20150131
